FAERS Safety Report 20170618 (Version 2)
Quarter: 2022Q1

REPORT INFORMATION
  Report Type: Spontaneous
  Country: US (occurrence: US)
  Receive Date: 20211210
  Receipt Date: 20220119
  Transmission Date: 20220423
  Serious: No
  Sender: FDA-Public Use
  Company Number: US-PFIZER INC-202101578776

PATIENT
  Age: 15 Year
  Sex: Male
  Weight: 44.45 kg

DRUGS (1)
  1. GENOTROPIN [Suspect]
     Active Substance: SOMATROPIN
     Dosage: 2.2 MG
     Dates: start: 20211111, end: 20211111

REACTIONS (3)
  - Device use error [Unknown]
  - Accidental overdose [Unknown]
  - Hunger [Unknown]

NARRATIVE: CASE EVENT DATE: 20211101
